FAERS Safety Report 4384147-4 (Version None)
Quarter: 2004Q2

REPORT INFORMATION
  Report Type: 
  Country: None (occurrence: None)
  Receive Date: 20040623
  Receipt Date: 20040623
  Transmission Date: 20050107
  Serious: Yes (Hospitalization)
  Sender: FDA-Public Use
  Company Number: None

PATIENT
  Age: 82 Year
  Sex: Female
  Weight: 50.8029 kg

DRUGS (9)
  1. TAXOTERE [Suspect]
     Indication: PANCREATIC CARCINOMA
     Dosage: 35 MG/M2 WEEKLY TIM INTRAVENOUS
     Route: 042
     Dates: start: 20031208, end: 20040601
  2. AVASTIN [Suspect]
     Indication: PANCREATIC CARCINOMA
     Dosage: 10 MG/KG EVERY 14 D INTRAVENOUS
     Route: 042
     Dates: start: 20031208, end: 20040524
  3. LIPRAM CR-10 [Concomitant]
  4. FOLIC ACID [Concomitant]
  5. NPH INSULIN [Concomitant]
  6. PRILOSEC [Concomitant]
  7. EPOGEN [Concomitant]
  8. LASSIX [Concomitant]
  9. MULTI-VITAMINS [Concomitant]

REACTIONS (8)
  - ABDOMINAL PAIN UPPER [None]
  - BLOOD CREATININE INCREASED [None]
  - BLOOD UREA INCREASED [None]
  - CHEST PAIN [None]
  - DIARRHOEA [None]
  - HYPOVOLAEMIA [None]
  - OEDEMA PERIPHERAL [None]
  - PSEUDOMONAL BACTERAEMIA [None]
